FAERS Safety Report 18533288 (Version 1)
Quarter: 2020Q4

REPORT INFORMATION
  Report Type: Spontaneous
  Country: US (occurrence: US)
  Receive Date: 20201120
  Receipt Date: 20201120
  Transmission Date: 20210114
  Serious: No
  Sender: FDA-Public Use
  Company Number: None

PATIENT
  Age: 64 Year
  Sex: Male

DRUGS (12)
  1. NOREPINEPHRINE. [Concomitant]
     Active Substance: NOREPINEPHRINE
  2. MULTIVITAMIN [Concomitant]
     Active Substance: VITAMINS
  3. PANTOPRAZOLE [Concomitant]
     Active Substance: PANTOPRAZOLE
  4. THIAMINE. [Concomitant]
     Active Substance: THIAMINE
  5. DEXAMETHASONE. [Concomitant]
     Active Substance: DEXAMETHASONE
  6. SODIUM CHLORIDE INFUSION [Concomitant]
  7. FUROSEMIDE. [Concomitant]
     Active Substance: FUROSEMIDE
  8. ENOXAPARIN SC [Concomitant]
  9. FENTANYL PCA [Concomitant]
     Active Substance: FENTANYL
  10. POTASSIUM AND SODIUM PHOSPHATE PACKET [Concomitant]
  11. PROPOFOL INFUSION [Concomitant]
     Active Substance: PROPOFOL
  12. REMDESIVIR. [Suspect]
     Active Substance: REMDESIVIR
     Indication: COVID-19
     Dates: start: 20201017, end: 20201021

REACTIONS (3)
  - Bradycardia [None]
  - Infusion related reaction [None]
  - Hypertension [None]
